FAERS Safety Report 5155195-1 (Version None)
Quarter: 2006Q4

REPORT INFORMATION
  Report Type: 
  Country: None (occurrence: None)
  Receive Date: 20061121
  Receipt Date: 20061013
  Transmission Date: 20070319
  Serious: Yes (Hospitalization)
  Sender: FDA-Public Use
  Company Number: HQWYE206417OCT06

PATIENT
  Sex: Female
  Weight: 38 kg

DRUGS (10)
  1. ENBREL [Suspect]
     Indication: RHEUMATOID ARTHRITIS
     Route: 058
     Dates: start: 20060720, end: 20060928
  2. ENBREL [Suspect]
     Route: 058
     Dates: start: 20061003, end: 20061013
  3. VASOLAN [Concomitant]
     Indication: ATRIAL FIBRILLATION
     Route: 048
     Dates: start: 20040107, end: 20061013
  4. VASOLAN [Concomitant]
     Dosage: 120 MG UNSPECIFIED FREQUENCY
     Dates: start: 20061023
  5. LENDORMIN [Concomitant]
     Indication: INSOMNIA
     Route: 048
     Dates: start: 20020906, end: 20061031
  6. ISONIAZID [Concomitant]
     Indication: ANTIBIOTIC PROPHYLAXIS
     Route: 048
     Dates: start: 20060720, end: 20061013
  7. SPIRONOLACTONE [Concomitant]
     Indication: ASCITES
     Route: 048
     Dates: start: 20050331, end: 20061013
  8. LASIX [Concomitant]
     Indication: ASCITES
     Route: 048
     Dates: start: 20050331, end: 20061013
  9. CALBLOCK [Concomitant]
     Indication: HYPERTENSION
     Route: 048
     Dates: start: 20050131, end: 20061013
  10. MEVALOTIN [Concomitant]
     Indication: HYPERLIPIDAEMIA
     Route: 048
     Dates: start: 20020906, end: 20061013

REACTIONS (1)
  - STEVENS-JOHNSON SYNDROME [None]
